FAERS Safety Report 7666278-6 (Version None)
Quarter: 2011Q3

REPORT INFORMATION
  Report Type: 
  Country: None (occurrence: None)
  Receive Date: 20110806
  Receipt Date: 20110627
  Transmission Date: 20111222
  Serious: No
  Sender: FDA-Public Use
  Company Number: US-ABBOTT-11P-163-0834779-00

PATIENT
  Sex: Female
  Weight: 63.56 kg

DRUGS (7)
  1. LISINOPRIL [Concomitant]
     Indication: HYPERTENSION
  2. EFFIENT [Concomitant]
     Indication: ANTICOAGULANT THERAPY
  3. ASPIRIN [Concomitant]
     Indication: ANTICOAGULANT THERAPY
  4. LEVOTHYROXINE SODIUM [Concomitant]
     Indication: HYPOTHYROIDISM
  5. ASPIRIN [Concomitant]
     Indication: PROPHYLAXIS
  6. NIASPAN [Suspect]
     Indication: BLOOD CHOLESTEROL INCREASED
     Dates: start: 20110612
  7. ASPIRIN [Concomitant]
     Indication: FLUSHING

REACTIONS (2)
  - FLUSHING [None]
  - URTICARIA [None]
